FAERS Safety Report 20883793 (Version 5)
Quarter: 2022Q2

REPORT INFORMATION
  Report Type: Report from Study
  Country: GB (occurrence: GB)
  Receive Date: 20220527
  Receipt Date: 20220614
  Transmission Date: 20220720
  Serious: Yes (Hospitalization)
  Sender: FDA-Public Use
  Company Number: GB-IPSEN Group, Research and Development-2022-14508

PATIENT
  Age: 59 Year
  Sex: Male
  Weight: 134.6 kg

DRUGS (17)
  1. CABOZANTINIB [Suspect]
     Active Substance: CABOZANTINIB
     Indication: Metastatic renal cell carcinoma
     Dosage: 60 MG, QD
     Route: 048
     Dates: start: 20220303, end: 20220428
  2. CABOZANTINIB [Suspect]
     Active Substance: CABOZANTINIB
     Dosage: 60 MG, QD
     Route: 048
     Dates: start: 20220505, end: 20220518
  3. CABOZANTINIB [Suspect]
     Active Substance: CABOZANTINIB
     Dosage: 40 MG, QD
     Route: 048
     Dates: start: 20220602
  4. OXYCODONE HYDROCHLORIDE [Concomitant]
     Active Substance: OXYCODONE HYDROCHLORIDE
     Indication: Abdominal pain
     Dosage: 10 MG, 4-6 HOURS (ONGOING)
     Route: 048
     Dates: start: 20220214
  5. OXYCODONE HYDROCHLORIDE [Concomitant]
     Active Substance: OXYCODONE HYDROCHLORIDE
     Indication: Abdominal pain
     Dosage: 80 MG, TWICE PER DAY (ONGOING)
     Route: 048
     Dates: start: 20220215
  6. DIAZEPAM [Concomitant]
     Active Substance: DIAZEPAM
     Indication: Anxiety disorder
     Dosage: 2 MG, DAILY (ONGOING)
     Route: 048
     Dates: start: 20210521
  7. AMLODIPINE [Concomitant]
     Active Substance: AMLODIPINE BESYLATE
     Indication: Hypertension
     Dosage: 10 MG, DAILY
     Route: 048
     Dates: start: 20210727, end: 20220221
  8. ENSURE [Concomitant]
     Active Substance: AMINO ACIDS\DEXTROSE\ELECTROLYTES NOS\SOYBEAN OIL\VITAMINS
     Indication: Decreased appetite
     Dosage: ONE BOTTLE DAILY (ONGOING)
     Route: 048
     Dates: start: 20211126
  9. RISPERIDONE [Concomitant]
     Active Substance: RISPERIDONE
     Indication: Anxiety disorder
     Dosage: 500 MICROGRAM, DAILY  (ONGOING)
     Route: 048
     Dates: start: 20211007
  10. NITROGLYCERIN [Concomitant]
     Active Substance: NITROGLYCERIN
     Indication: Myocardial ischaemia
     Dosage: 400 MICROGRAM, AS NEEDED  (ONGOING)
     Route: 060
     Dates: start: 20170324
  11. BISOPROLOL FUMARATE [Concomitant]
     Active Substance: BISOPROLOL FUMARATE
     Indication: Myocardial ischaemia
     Dosage: 10 MG, DAILY (ONGOING)
     Route: 048
     Dates: start: 20180423
  12. DULOXETINE [Concomitant]
     Active Substance: DULOXETINE
     Indication: Anxiety disorder
     Dosage: 60 MG, DAILY (ONGOING)
     Route: 048
     Dates: start: 20200921
  13. KENALOG [Concomitant]
     Active Substance: TRIAMCINOLONE ACETONIDE
     Indication: Periarthritis
     Dosage: 40 MG, ONE DOSE BOTH SHOULDERS (ONGOING)
     Dates: start: 20220118
  14. LIDOCAINE [Concomitant]
     Active Substance: LIDOCAINE
     Indication: Periarthritis
     Dosage: 40 MG, ONCE ONLY (ONGOING)
     Dates: start: 20220118
  15. OMEPRAZOLE [Concomitant]
     Active Substance: OMEPRAZOLE
     Indication: Gastritis prophylaxis
     Dosage: 20 MG, DAILY (ONGOING)
     Route: 048
     Dates: start: 20191007
  16. GABAPENTIN [Concomitant]
     Active Substance: GABAPENTIN
     Indication: Pain
     Dosage: 100 MG, THREE TIMES PER DAY (ONGOING)
     Route: 048
     Dates: start: 20220429
  17. SYNALAR C OINTMENT [Concomitant]
     Indication: Chondrodermatitis nodularis chronica helicis
     Dosage: 1 MG TWICE PER DAY (ONGOING)
     Route: 062
     Dates: start: 20220308

REACTIONS (2)
  - Plantar erythema [Recovered/Resolved]
  - Headache [Not Recovered/Not Resolved]

NARRATIVE: CASE EVENT DATE: 20220518
